FAERS Safety Report 6612394-7 (Version None)
Quarter: 2010Q1

REPORT INFORMATION
  Report Type: 
  Country: None (occurrence: None)
  Receive Date: 20100303
  Receipt Date: 20100218
  Transmission Date: 20100710
  Serious: Yes (Hospitalization, Disabling)
  Sender: FDA-Public Use
  Company Number: PHHY2010DE10139

PATIENT

DRUGS (1)
  1. EXFORGE [Suspect]

REACTIONS (1)
  - ADENOCARCINOMA [None]
